FAERS Safety Report 5479662-6 (Version None)
Quarter: 2007Q4

REPORT INFORMATION
  Report Type: 
  Country: None (occurrence: None)
  Receive Date: 20071008
  Receipt Date: 20071004
  Transmission Date: 20080405
  Serious: Yes (Life-Threatening)
  Sender: FDA-Public Use
  Company Number: B0487624A

PATIENT
  Age: 81 Year
  Sex: Female
  Weight: 52 kg

DRUGS (6)
  1. VALTREX [Suspect]
     Indication: HERPES ZOSTER
     Dosage: 1000MG THREE TIMES PER DAY
     Route: 048
     Dates: start: 20070911, end: 20070914
  2. LOXONIN [Suspect]
     Indication: HERPES ZOSTER
     Dosage: 60MG TWICE PER DAY
     Route: 048
     Dates: start: 20070912, end: 20070914
  3. ASPIRIN [Concomitant]
     Indication: MYOCARDIAL INFARCTION
     Route: 048
  4. VITANEURIN [Concomitant]
     Indication: HERPES ZOSTER
     Dosage: 100MG PER DAY
     Route: 048
     Dates: start: 20070912, end: 20070914
  5. SIGMART [Concomitant]
     Indication: MYOCARDIAL INFARCTION
     Route: 048
  6. NEUQUINON [Concomitant]
     Indication: MYOCARDIAL INFARCTION
     Route: 048

REACTIONS (3)
  - FEELING ABNORMAL [None]
  - RENAL FAILURE ACUTE [None]
  - VOMITING [None]
